FAERS Safety Report 10459088 (Version 1)
Quarter: 2014Q3

REPORT INFORMATION
  Report Type: Spontaneous
  Country: US (occurrence: US)
  Receive Date: 20140917
  Receipt Date: 20140917
  Transmission Date: 20150326
  Serious: Yes (Hospitalization)
  Sender: FDA-Public Use
  Company Number: US-BAYER-2014-138368

PATIENT
  Sex: Female

DRUGS (3)
  1. OCELLA [Suspect]
     Active Substance: DROSPIRENONE\ETHINYL ESTRADIOL
     Indication: CONTRACEPTION
     Dosage: UNK
     Route: 048
     Dates: start: 200903, end: 20131202
  2. OCELLA [Suspect]
     Active Substance: DROSPIRENONE\ETHINYL ESTRADIOL
     Indication: CYST
  3. OCELLA [Suspect]
     Active Substance: DROSPIRENONE\ETHINYL ESTRADIOL
     Indication: ENDOMETRIOSIS

REACTIONS (8)
  - Mental disorder [Not Recovered/Not Resolved]
  - Haemorrhage [None]
  - Pulmonary embolism [None]
  - Abdominal pain [None]
  - Injury [None]
  - Ovarian mass [None]
  - Infertility female [None]
  - Off label use [None]

NARRATIVE: CASE EVENT DATE: 200903
